FAERS Safety Report 8486154-9 (Version None)
Quarter: 2012Q3

REPORT INFORMATION
  Report Type: 
  Country: None (occurrence: None)
  Receive Date: 20120703
  Receipt Date: 20120620
  Transmission Date: 20120928
  Serious: Yes (Other)
  Sender: FDA-Public Use
  Company Number: DE-CELGENEUS-062-C5013-12051302

PATIENT
  Age: 73 Year
  Sex: Male
  Weight: 81 kg

DRUGS (14)
  1. LENALIDOMIDE [Suspect]
     Indication: MULTIPLE MYELOMA
     Dosage: 25
     Route: 048
     Dates: start: 20101110
  2. CLORAZEPATE DIPOTASSIUM [Concomitant]
     Dosage: 20 MILLIGRAM
     Route: 048
     Dates: start: 20111207
  3. ASPIRIN [Concomitant]
     Indication: THROMBOSIS PROPHYLAXIS
     Dosage: 100 MILLIGRAM
     Route: 048
     Dates: start: 20110528
  4. METOCLOPRAMIDE [Concomitant]
     Indication: DIABETIC GASTROPARESIS
     Dosage: 30 DROPS
     Route: 048
     Dates: start: 20050101
  5. SIMVASTATIN [Concomitant]
     Dosage: 20 MILLIGRAM
     Route: 048
     Dates: start: 20040101
  6. KELTICAN [Concomitant]
     Dosage: 3 CAPSULE
     Route: 048
     Dates: start: 20070101
  7. DEXAMETHASONE SODIUM PHOSPHATE [Suspect]
     Indication: MULTIPLE MYELOMA
     Dosage: 40 MILLIGRAM
     Route: 065
     Dates: start: 20101110
  8. DEXAMETHASONE SODIUM PHOSPHATE [Suspect]
     Route: 065
     Dates: end: 20110620
  9. RAMIPRIL [Concomitant]
     Indication: PROPHYLAXIS
     Dosage: 5 MILLIGRAM
     Route: 048
     Dates: start: 20070101
  10. PAMIDRONATE DISODIUM [Concomitant]
     Indication: OSTEOLYSIS
     Route: 041
     Dates: start: 20110720
  11. THIOCTACID [Concomitant]
     Dosage: 600 MILLIGRAM
     Route: 048
     Dates: start: 20070101
  12. LENALIDOMIDE [Suspect]
     Route: 048
     Dates: end: 20120320
  13. INSULIN [Concomitant]
     Indication: DIABETES MELLITUS
     Dosage: 20, 30, 40 IU
     Route: 058
     Dates: start: 19910101
  14. ESOMEPRAZOLE [Concomitant]
     Dosage: 20 MILLIGRAM
     Route: 048
     Dates: start: 20040101

REACTIONS (1)
  - BASAL CELL CARCINOMA [None]
